FAERS Safety Report 5167006-9 (Version None)
Quarter: 2006Q4

REPORT INFORMATION
  Report Type: 
  Country: None (occurrence: None)
  Receive Date: 20061201
  Receipt Date: 20061201
  Transmission Date: 20070319
  Serious: Yes (Hospitalization)
  Sender: FDA-Public Use
  Company Number: None

PATIENT
  Age: 59 Year
  Sex: Male
  Weight: 101.1521 kg

DRUGS (12)
  1. WARFARIN SODIUM [Suspect]
     Indication: AORTIC VALVE REPLACEMENT
     Dosage: 6 MG DAILY PO
     Route: 048
     Dates: start: 20020901, end: 20061130
  2. ALLOPURINOL [Concomitant]
  3. FLUVASTATIN [Concomitant]
  4. GEMFIBROZIN [Concomitant]
  5. LISINOPRIL [Concomitant]
  6. METOPROLOL SUCCINATE [Concomitant]
  7. SPIRONOLACTONE [Concomitant]
  8. WARFARIN SODIUM [Concomitant]
  9. SODIUM BICARB [Concomitant]
  10. ERGOCALCIFEROL -VIT D- [Concomitant]
  11. ANALGESIC CREAM [Concomitant]
  12. GLYBURIDE [Concomitant]

REACTIONS (7)
  - BRONCHITIS [None]
  - COUGH [None]
  - DRUG TOXICITY [None]
  - EAR HAEMORRHAGE [None]
  - HAEMOPTYSIS [None]
  - INTERNATIONAL NORMALISED RATIO DECREASED [None]
  - INTERNATIONAL NORMALISED RATIO INCREASED [None]
